FAERS Safety Report 5953428-2 (Version None)
Quarter: 2008Q4

REPORT INFORMATION
  Report Type: 
  Country: None (occurrence: None)
  Receive Date: 20081114
  Receipt Date: 20081014
  Transmission Date: 20090506
  Serious: No
  Sender: FDA-Public Use
  Company Number: US-BAYER-200835927NA

PATIENT
  Age: 62 Year
  Sex: Female

DRUGS (1)
  1. CLIMARA [Suspect]
     Route: 062
     Dates: start: 20061001

REACTIONS (1)
  - HOT FLUSH [None]
